FAERS Safety Report 6027886-1 (Version None)
Quarter: 2009Q1

REPORT INFORMATION
  Report Type: 
  Country: None (occurrence: None)
  Receive Date: 20090105
  Receipt Date: 20081215
  Transmission Date: 20090719
  Serious: Yes (Hospitalization)
  Sender: FDA-Public Use
  Company Number: US-PFIZER INC-2008079123

PATIENT
  Sex: Female
  Weight: 110.66 kg

DRUGS (17)
  1. SILDENAFIL CITRATE [Suspect]
     Indication: PULMONARY ARTERIAL HYPERTENSION
     Route: 048
     Dates: start: 20080717, end: 20080820
  2. IPRATROPIUM BROMIDE [Concomitant]
     Route: 055
     Dates: start: 20080307
  3. OMEPRAZOLE [Concomitant]
     Route: 048
     Dates: start: 20050601
  4. SALBUTAMOL SULFATE [Concomitant]
     Dates: start: 20080307
  5. PROZAC [Concomitant]
     Route: 048
     Dates: start: 20031201
  6. DIGOXIN [Concomitant]
     Route: 048
     Dates: start: 20080307
  7. POTASSIUM CHLORIDE [Concomitant]
     Route: 048
     Dates: start: 20080415
  8. AMLODIPINE [Concomitant]
     Route: 048
     Dates: start: 20080419
  9. FUROSEMIDE [Concomitant]
     Route: 048
     Dates: start: 20080717
  10. LOMOTIL [Concomitant]
     Route: 048
     Dates: start: 20080704
  11. OXYGEN [Concomitant]
     Route: 045
     Dates: start: 20080330
  12. TESTOSTERONE [Concomitant]
     Dosage: 2 %
     Route: 061
     Dates: start: 20080520
  13. PREDNISONE TAB [Concomitant]
     Route: 048
     Dates: start: 20080909
  14. ALDACTONE [Concomitant]
     Route: 048
     Dates: start: 20080909
  15. NEXIUM [Concomitant]
     Route: 042
     Dates: start: 20080909
  16. PROAIR HFA [Concomitant]
     Route: 055
     Dates: start: 20080307
  17. REMODULIN [Concomitant]
     Route: 042
     Dates: start: 20080820

REACTIONS (2)
  - SYNCOPE [None]
  - URINARY TRACT INFECTION [None]
